FAERS Safety Report 4886174-7 (Version None)
Quarter: 2006Q1

REPORT INFORMATION
  Report Type: 
  Country: None (occurrence: None)
  Receive Date: 20060120
  Receipt Date: 20060116
  Transmission Date: 20060701
  Serious: Yes (Other)
  Sender: FDA-Public Use
  Company Number: NL-GLAXOSMITHKLINE-B0406666A

PATIENT
  Age: 18 Year
  Sex: Female

DRUGS (1)
  1. LAMOTRIGINE [Suspect]
     Dosage: 250MG TWICE PER DAY

REACTIONS (4)
  - AGGRESSION [None]
  - COGNITIVE DISORDER [None]
  - DRUG INEFFECTIVE [None]
  - PERSONALITY CHANGE [None]
